FAERS Safety Report 12154040 (Version 3)
Quarter: 2016Q1

REPORT INFORMATION
  Report Type: Report from Study
  Country: US (occurrence: US)
  Receive Date: 20160307
  Receipt Date: 20160323
  Transmission Date: 20160526
  Serious: Yes (Other)
  Sender: FDA-Public Use
  Company Number: US-AMGEN-USACT2016026588

PATIENT
  Age: 71 Year
  Sex: Female

DRUGS (13)
  1. LISINOPRIL. [Concomitant]
     Active Substance: LISINOPRIL
     Dosage: 10 MG, QD
     Route: 048
     Dates: start: 20091201
  2. FOLIC ACID. [Concomitant]
     Active Substance: FOLIC ACID
     Dosage: 1 MG, QD
     Route: 048
     Dates: start: 20030601
  3. HYDROCHLOROTHIAZIDE. [Concomitant]
     Active Substance: HYDROCHLOROTHIAZIDE
     Dosage: 12.5 MG, QD
     Route: 048
     Dates: start: 20091201
  4. TURMERIC                           /01079601/ [Concomitant]
     Active Substance: TURMERIC
     Dosage: 500 MG, 2 IN 1 D
     Route: 048
     Dates: start: 20140715
  5. LOVASTATIN. [Concomitant]
     Active Substance: LOVASTATIN
     Dosage: 20 MG, QD
     Route: 048
     Dates: start: 20091201
  6. IBUPROFEN. [Concomitant]
     Active Substance: IBUPROFEN
     Dosage: 800 MG, AS NECESSARY
     Route: 048
     Dates: start: 20120315
  7. GLIPIZIDE. [Concomitant]
     Active Substance: GLIPIZIDE
     Dosage: 5 MG, QD
     Route: 048
     Dates: start: 20140715
  8. ETANERCEPT [Suspect]
     Active Substance: ETANERCEPT
     Indication: RHEUMATOID ARTHRITIS
     Dosage: 50 MG, QWK
     Route: 058
     Dates: end: 20140228
  9. METHOTREXATE [Concomitant]
     Active Substance: METHOTREXATE
     Dosage: 12.5 MG, QWK
     Route: 048
     Dates: start: 20030101, end: 20140611
  10. METHOTREXATE [Concomitant]
     Active Substance: METHOTREXATE
     Dosage: 20 MG, QWK
     Route: 048
     Dates: start: 20140612
  11. LEVOTHYROXINE. [Concomitant]
     Active Substance: LEVOTHYROXINE
     Dosage: 50 MG, QD
     Route: 048
     Dates: start: 20140306
  12. PREDNISONE. [Concomitant]
     Active Substance: PREDNISONE
     Dosage: 5 MG, QD
     Route: 048
     Dates: start: 20010101
  13. KEFLEX [Concomitant]
     Active Substance: CEPHALEXIN
     Dosage: 500 MG, QID
     Route: 048
     Dates: start: 20130211, end: 20130218

REACTIONS (1)
  - Squamous cell carcinoma of skin [Recovered/Resolved]

NARRATIVE: CASE EVENT DATE: 20140302
